FAERS Safety Report 7117946-6 (Version None)
Quarter: 2010Q4

REPORT INFORMATION
  Report Type: 
  Country: None (occurrence: None)
  Receive Date: 20101123
  Receipt Date: 20101110
  Transmission Date: 20110411
  Serious: Yes (Other)
  Sender: FDA-Public Use
  Company Number: PHHY2009AR36857

PATIENT
  Sex: Female

DRUGS (2)
  1. ACLASTA [Suspect]
     Indication: OSTEOPOROSIS
     Dosage: ONE ANNUAL AMPOULE
     Dates: start: 20081201
  2. ACLASTA [Suspect]
     Dosage: UNK
     Dates: start: 20100101

REACTIONS (5)
  - APTYALISM [None]
  - GINGIVAL RECESSION [None]
  - SALIVA ALTERED [None]
  - SALIVA ANALYSIS ABNORMAL [None]
  - SALIVARY GLAND DISORDER [None]
